FAERS Safety Report 21875625 (Version 1)
Quarter: 2023Q1

REPORT INFORMATION
  Report Type: Spontaneous
  Country: ES (occurrence: ES)
  Receive Date: 20230118
  Receipt Date: 20230118
  Transmission Date: 20230417
  Serious: Yes (Other)
  Sender: FDA-Public Use
  Company Number: ES-AMGEN-ESPSP2023006835

PATIENT
  Age: 21 Year
  Sex: Female

DRUGS (2)
  1. ADALIMUMAB [Suspect]
     Active Substance: ADALIMUMAB
     Indication: Chorioretinitis
     Dosage: 40 MILLIGRAM, Q2WK
     Route: 058
  2. OZURDEX [Concomitant]
     Active Substance: DEXAMETHASONE
     Indication: Chorioretinitis
     Dosage: UNK
     Route: 065

REACTIONS (2)
  - Retinal degeneration [Unknown]
  - Chorioretinal scar [Unknown]
